FAERS Safety Report 7241890-7 (Version None)
Quarter: 2011Q1

REPORT INFORMATION
  Report Type: 
  Country: None (occurrence: None)
  Receive Date: 20110124
  Receipt Date: 20110113
  Transmission Date: 20110831
  Serious: Yes (Hospitalization)
  Sender: FDA-Public Use
  Company Number: JP-ASTRAZENECA-2011SE02862

PATIENT
  Age: 72 Year
  Sex: Male

DRUGS (2)
  1. BLOPRESS [Suspect]
     Indication: HYPERTENSION
     Route: 048
     Dates: start: 20100801, end: 20101001
  2. BOUFUUTSUUSHOUSAN [Suspect]
     Route: 048

REACTIONS (1)
  - PULMONARY OEDEMA [None]
